FAERS Safety Report 7202463-5 (Version None)
Quarter: 2010Q4

REPORT INFORMATION
  Report Type: 
  Country: None (occurrence: None)
  Receive Date: 20101229
  Receipt Date: 20101221
  Transmission Date: 20110411
  Serious: Yes (Life-Threatening)
  Sender: FDA-Public Use
  Company Number: B0690362A

PATIENT
  Sex: Male

DRUGS (3)
  1. KIVEXA [Suspect]
     Indication: HIV INFECTION
     Dates: start: 20080101
  2. PREZISTA [Suspect]
     Indication: HIV INFECTION
     Dates: start: 20100615
  3. KALETRA [Concomitant]
     Indication: HIV INFECTION
     Dates: start: 20080101, end: 20100615

REACTIONS (11)
  - CEREBRAL HAEMORRHAGE [None]
  - CEREBRAL ISCHAEMIA [None]
  - CEREBRAL THROMBOSIS [None]
  - CEREBRAL VENTRICLE DILATATION [None]
  - CONVULSION [None]
  - DRUG EXPOSURE DURING PREGNANCY [None]
  - EPILEPSY [None]
  - EYE MOVEMENT DISORDER [None]
  - NEONATAL DISORDER [None]
  - NERVOUS SYSTEM DISORDER [None]
  - THROMBOPHLEBITIS NEONATAL [None]
